FAERS Safety Report 21479866 (Version 1)
Quarter: 2022Q4

REPORT INFORMATION
  Report Type: Report from Study
  Country: CA (occurrence: CA)
  Receive Date: 20221019
  Receipt Date: 20221019
  Transmission Date: 20230112
  Serious: Yes (Other)
  Sender: FDA-Public Use
  Company Number: CA-JNJFOC-20220856960

PATIENT
  Age: 13 Year
  Sex: Male
  Weight: 48 kg

DRUGS (1)
  1. REMICADE [Suspect]
     Active Substance: INFLIXIMAB
     Indication: Crohn^s disease
     Dosage: EXP: 01-JAN-2025
     Route: 041

REACTIONS (1)
  - Oesophageal rupture [Recovered/Resolved]

NARRATIVE: CASE EVENT DATE: 20220825
